FAERS Safety Report 18078664 (Version 1)
Quarter: 2020Q3

REPORT INFORMATION
  Report Type: Spontaneous
  Country: US (occurrence: US)
  Receive Date: 20200727
  Receipt Date: 20200727
  Transmission Date: 20201103
  Serious: Yes (Hospitalization, Other)
  Sender: FDA-Public Use
  Company Number: None

PATIENT
  Age: 28 Year
  Sex: Female
  Weight: 76.5 kg

DRUGS (7)
  1. LAMICTAL [Suspect]
     Active Substance: LAMOTRIGINE
  2. VITAMIN C [Concomitant]
     Active Substance: ASCORBIC ACID
  3. VITAMIN D3 2000 UNITS [Concomitant]
  4. VITAMIN B COMPLEX [Concomitant]
     Active Substance: CYANOCOBALAMIN\DEXPANTHENOL\NIACINAMIDE\PYRIDOXINE HYDROCHLORIDE\RIBOFLAVIN 5^-PHOSPHATE SODIUM\THIAMINE HYDROCHLORIDE\VITAMIN B COMPLEX
  5. LATUDA [Concomitant]
     Active Substance: LURASIDONE HYDROCHLORIDE
  6. NIACIN. [Concomitant]
     Active Substance: NIACIN
  7. ATIVAN [Concomitant]
     Active Substance: LORAZEPAM

REACTIONS (8)
  - Anal incontinence [None]
  - Mania [None]
  - Weight decreased [None]
  - Generalised tonic-clonic seizure [None]
  - Incontinence [None]
  - Delusion [None]
  - Psychotic disorder [None]
  - Hallucinations, mixed [None]

NARRATIVE: CASE EVENT DATE: 20200604
